FAERS Safety Report 4348580-9 (Version None)
Quarter: 2004Q2

REPORT INFORMATION
  Report Type: 
  Country: None (occurrence: None)
  Receive Date: 20040422
  Receipt Date: 20040409
  Transmission Date: 20050107
  Serious: Yes (Hospitalization)
  Sender: FDA-Public Use
  Company Number: 200400633

PATIENT
  Age: 74 Year
  Sex: Male

DRUGS (8)
  1. IMODIUM [Suspect]
     Indication: DIARRHOEA
     Dosage: 1 MG QD PO
     Route: 048
     Dates: start: 20030715, end: 20030811
  2. IMODIUM [Suspect]
     Indication: GASTROINTESTINAL DISORDER
     Dosage: 1 MG QD PO
     Route: 048
     Dates: start: 20030715, end: 20030811
  3. TRIMEBUTINE MALEATE #3 URSODEOXYCHOLIC ACID [Suspect]
     Indication: DIARRHOEA
     Dosage: 3 DOSES DAILY
     Dates: start: 20030723, end: 20030811
  4. TRIMEBUTINE MALEATE #3 URSODEOXYCHOLIC ACID [Suspect]
     Indication: GASTROINTESTINAL DISORDER
     Dosage: 3 DOSES DAILY
     Dates: start: 20030723, end: 20030811
  5. ALBUMIN TANNATE [Concomitant]
  6. ALUMINUM SILICATE [Concomitant]
  7. ANTIDIARRHEALS [Concomitant]
  8. INTESTINAL REGULATORS [Concomitant]

REACTIONS (7)
  - ALANINE AMINOTRANSFERASE INCREASED [None]
  - ALLERGY TEST POSITIVE [None]
  - ASPARTATE AMINOTRANSFERASE INCREASED [None]
  - BLOOD ALKALINE PHOSPHATASE INCREASED [None]
  - BLOOD LACTATE DEHYDROGENASE INCREASED [None]
  - DRUG HYPERSENSITIVITY [None]
  - HEPATIC FUNCTION ABNORMAL [None]
